FAERS Safety Report 5906913-3 (Version None)
Quarter: 2008Q4

REPORT INFORMATION
  Report Type: 
  Country: None (occurrence: None)
  Receive Date: 20081003
  Receipt Date: 20080902
  Transmission Date: 20090506
  Serious: No
  Sender: FDA-Public Use
  Company Number: US-BAYER-200828941NA

PATIENT
  Sex: Female

DRUGS (2)
  1. MIRENA [Suspect]
     Indication: DRUG USE FOR UNKNOWN INDICATION
     Route: 015
     Dates: start: 20080721, end: 20080721
  2. MIRENA [Suspect]
     Route: 015
     Dates: start: 20080721

REACTIONS (1)
  - COMPLICATION OF DEVICE INSERTION [None]
